FAERS Safety Report 13061506 (Version 1)
Quarter: 2016Q4

REPORT INFORMATION
  Report Type: Spontaneous
  Country: US (occurrence: US)
  Receive Date: 20161226
  Receipt Date: 20161226
  Transmission Date: 20170207
  Serious: No
  Sender: FDA-Public Use
  Company Number: US-NOVEN PHARMACEUTICALS, INC.-US2015001327

PATIENT
  Age: 51 Year
  Sex: Female

DRUGS (1)
  1. MINIVELLE [Suspect]
     Active Substance: ESTRADIOL
     Indication: PRODUCT USED FOR UNKNOWN INDICATION
     Dosage: 0.1 MG, UNKNOWN
     Route: 062
     Dates: end: 2015

REACTIONS (4)
  - Therapy cessation [Not Recovered/Not Resolved]
  - Product adhesion issue [Unknown]
  - Application site rash [Recovered/Resolved]
  - Application site irritation [Unknown]

NARRATIVE: CASE EVENT DATE: 2015
